FAERS Safety Report 13681265 (Version 1)
Quarter: 2017Q2

REPORT INFORMATION
  Report Type: Spontaneous
  Country: US (occurrence: US)
  Receive Date: 20170622
  Receipt Date: 20170622
  Transmission Date: 20170830
  Serious: No
  Sender: FDA-Public Use
  Company Number: None

PATIENT
  Age: 21 Year
  Sex: Female
  Weight: 82.35 kg

DRUGS (3)
  1. AMOXICILLIN. [Concomitant]
     Active Substance: AMOXICILLIN
  2. MONISTAT 1 COMBINATION PACK [Suspect]
     Active Substance: MICONAZOLE NITRATE
     Indication: FUNGAL INFECTION
     Dosage: QUANTITY:1 SUPPOSITORY(IES); AT BEDTIME?
     Route: 067
  3. AZURETTE [Concomitant]
     Active Substance: DESOGESTREL\ETHINYL ESTRADIOL

REACTIONS (5)
  - Product quality issue [None]
  - Vulvovaginal pruritus [None]
  - Vulvovaginal burning sensation [None]
  - Pain [None]
  - Product label issue [None]

NARRATIVE: CASE EVENT DATE: 20170622
